FAERS Safety Report 7209740-2 (Version None)
Quarter: 2011Q1

REPORT INFORMATION
  Report Type: 
  Country: None (occurrence: None)
  Receive Date: 20110104
  Receipt Date: 20101222
  Transmission Date: 20110831
  Serious: Yes (Hospitalization)
  Sender: FDA-Public Use
  Company Number: FR-MYLANLABS-2010S1023689

PATIENT
  Age: 66 Year
  Sex: Male

DRUGS (4)
  1. BACLOFEN [Suspect]
     Indication: ALCOHOLISM
     Route: 065
  2. DIAZEPAM [Concomitant]
     Route: 065
  3. BACLOFEN [Suspect]
     Route: 065
  4. BACLOFEN [Suspect]
     Route: 065

REACTIONS (1)
  - DISINHIBITION [None]
